FAERS Safety Report 7991209-9 (Version None)
Quarter: 2011Q4

REPORT INFORMATION
  Report Type: 
  Country: None (occurrence: None)
  Receive Date: 20111219
  Receipt Date: 20111215
  Transmission Date: 20120403
  Serious: Yes (Hospitalization)
  Sender: FDA-Public Use
  Company Number: US-GLAXOSMITHKLINE-A0921699A

PATIENT
  Sex: Female

DRUGS (3)
  1. VENTOLIN [Suspect]
     Indication: PRODUCT USED FOR UNKNOWN INDICATION
     Route: 065
     Dates: start: 20050307
  2. PAXIL CR [Suspect]
     Indication: PRODUCT USED FOR UNKNOWN INDICATION
     Dosage: 25MG UNKNOWN
     Route: 065
     Dates: start: 20050307
  3. ADVAIR DISKUS 100/50 [Suspect]
     Indication: PRODUCT USED FOR UNKNOWN INDICATION
     Route: 055
     Dates: start: 20050307

REACTIONS (4)
  - DYSPNOEA [None]
  - NASOPHARYNGITIS [None]
  - BRONCHITIS [None]
  - CARDIAC ENZYMES INCREASED [None]
